FAERS Safety Report 4586994-2 (Version None)
Quarter: 2005Q1

REPORT INFORMATION
  Report Type: 
  Country: None (occurrence: None)
  Receive Date: 20050218
  Receipt Date: 20050124
  Transmission Date: 20050727
  Serious: Yes (Other)
  Sender: FDA-Public Use
  Company Number: DE-NOVOPROD-241846

PATIENT
  Age: 72 Year
  Sex: Female
  Weight: 65 kg

DRUGS (7)
  1. NOVOSEVEN [Suspect]
     Indication: UPPER GASTROINTESTINAL HAEMORRHAGE
     Dosage: 5 DOSES
     Route: 042
     Dates: start: 20050120, end: 20050121
  2. OBSIDAN [Concomitant]
     Dosage: 25 MG, QD
     Route: 048
     Dates: start: 20050121, end: 20050121
  3. TOREM                                   /GFR/ [Concomitant]
     Dosage: 5 MG, QD
     Route: 048
     Dates: start: 20050121, end: 20050121
  4. SPIRONOLACTONE [Concomitant]
     Dosage: 50 MG, QD
     Route: 048
     Dates: start: 20050121, end: 20050121
  5. LACTULOSE [Concomitant]
     Dosage: 20 ML, QD
     Route: 048
     Dates: start: 20050120
  6. KONAKION [Concomitant]
     Dosage: UNK, UNK
     Route: 048
     Dates: start: 20050121, end: 20050121
  7. SOMATOSTATIN [Concomitant]
     Route: 042
     Dates: start: 20050121, end: 20050121

REACTIONS (5)
  - HEPATIC CIRRHOSIS [None]
  - HEPATIC FAILURE [None]
  - HEPATIC STEATOSIS [None]
  - HEPATITIS ALCOHOLIC [None]
  - HEPATOTOXICITY [None]
